FAERS Safety Report 7625821 (Version 10)
Quarter: 2016Q4

REPORT INFORMATION
  Report Type: Spontaneous
  Country: US (occurrence: US)
  Receive Date: 20101012
  Receipt Date: 20161026
  Transmission Date: 20170207
  Serious: Yes (Hospitalization, Other)
  Sender: FDA-Public Use
  Company Number: US-009507513-1010USA01163

PATIENT
  Sex: Female

DRUGS (5)
  1. ESTRADIOL. [Concomitant]
     Active Substance: ESTRADIOL
     Indication: HORMONE THERAPY
     Dosage: UNK
     Dates: start: 19840101
  2. FOSAMAX [Suspect]
     Active Substance: ALENDRONATE SODIUM
     Indication: BONE DISORDER
     Dosage: 70 MG, QW
     Route: 048
     Dates: start: 199810, end: 20080602
  3. BONIVA [Suspect]
     Active Substance: IBANDRONATE SODIUM
     Dosage: UNK DF, UNK
     Dates: start: 20080627, end: 201007
  4. FOSAMAX [Suspect]
     Active Substance: ALENDRONATE SODIUM
     Indication: BONE DISORDER
     Dosage: 70 MG, UNK
     Route: 048
     Dates: start: 20081016, end: 20090402
  5. ATENOLOL. [Concomitant]
     Active Substance: ATENOLOL
     Indication: CARDIAC DISORDER
     Dosage: UNK
     Dates: start: 1988

REACTIONS (59)
  - Nausea [Unknown]
  - Head injury [Unknown]
  - Venous injury [Unknown]
  - Nocturia [Unknown]
  - Anaemia postoperative [Recovering/Resolving]
  - Blood cholesterol increased [Not Recovered/Not Resolved]
  - Radius fracture [Unknown]
  - Abdominal pain [Unknown]
  - Asthenia [Unknown]
  - Fall [Unknown]
  - Asthenia [Unknown]
  - Fatigue [Unknown]
  - Vomiting [Unknown]
  - Gallbladder disorder [Unknown]
  - Anaemia postoperative [Unknown]
  - Cataract [Unknown]
  - Diarrhoea [Unknown]
  - Blood potassium decreased [Unknown]
  - Syncope [Not Recovered/Not Resolved]
  - Hypertension [Unknown]
  - Fall [Unknown]
  - Femur fracture [Unknown]
  - Fracture nonunion [Unknown]
  - Fall [Unknown]
  - Carotidynia [Unknown]
  - Fatigue [Unknown]
  - Pain [Unknown]
  - Intestinal obstruction [Unknown]
  - Intestinal obstruction [Unknown]
  - Fibrocystic breast disease [Unknown]
  - Abdominal pain [Unknown]
  - Low turnover osteopathy [Unknown]
  - Gastrooesophageal reflux disease [Unknown]
  - Myalgia [Unknown]
  - Alanine aminotransferase abnormal [Unknown]
  - Temperature intolerance [Unknown]
  - Skin disorder [Unknown]
  - Gastroenteritis [Unknown]
  - Ileus [Unknown]
  - Pancreatitis [Unknown]
  - Haematoma [Unknown]
  - Femur fracture [Unknown]
  - Upper limb fracture [Unknown]
  - Chest pain [Unknown]
  - Hypothyroidism [Not Recovered/Not Resolved]
  - Hyperlipidaemia [Unknown]
  - Coronary artery disease [Unknown]
  - Contusion [Unknown]
  - Back pain [Unknown]
  - Pneumonia [Unknown]
  - Chest pain [Unknown]
  - Urinary tract infection enterococcal [Unknown]
  - Hypomagnesaemia [Unknown]
  - Osteopenia [Unknown]
  - Osteoporosis [Unknown]
  - Gastrointestinal disorder [Not Recovered/Not Resolved]
  - Somnolence [Unknown]
  - Haemorrhage [Unknown]
  - Hypersensitivity [Unknown]

NARRATIVE: CASE EVENT DATE: 19981008
